FAERS Safety Report 5273343-X (Version None)
Quarter: 2007Q1

REPORT INFORMATION
  Report Type: 
  Country: None (occurrence: None)
  Receive Date: 20070319
  Receipt Date: 20070228
  Transmission Date: 20070707
  Serious: Yes (Other)
  Sender: FDA-Public Use
  Company Number: 15831

PATIENT
  Age: 60 Year
  Sex: Female

DRUGS (2)
  1. CARBOPLATIN [Suspect]
     Indication: OVARIAN CANCER
     Dosage: 450 MG DAILY IV
     Route: 042
     Dates: start: 20070126, end: 20070126
  2. PACLITAXEL [Concomitant]

REACTIONS (6)
  - DEFAECATION URGENCY [None]
  - FLUSHING [None]
  - HEART RATE INCREASED [None]
  - HYPERSENSITIVITY [None]
  - HYPOTENSION [None]
  - VOMITING [None]
